FAERS Safety Report 4680785-X (Version None)
Quarter: 2005Q2

REPORT INFORMATION
  Report Type: 
  Country: None (occurrence: None)
  Receive Date: 20050601
  Receipt Date: 20050520
  Transmission Date: 20051028
  Serious: Yes (Death)
  Sender: FDA-Public Use
  Company Number: 2005078685

PATIENT
  Age: 82 Year
  Sex: Male

DRUGS (1)
  1. CARDURA [Suspect]
     Indication: BENIGN PROSTATIC HYPERPLASIA
     Dosage: 4 MG(4 MG, QD), ORAL
     Route: 048
     Dates: start: 19990101, end: 20040924

REACTIONS (1)
  - CEREBROVASCULAR ACCIDENT [None]
